FAERS Safety Report 17984499 (Version 3)
Quarter: 2021Q1

REPORT INFORMATION
  Report Type: Spontaneous
  Country: DE (occurrence: DE)
  Receive Date: 20200706
  Receipt Date: 20210227
  Transmission Date: 20210419
  Serious: Yes (Hospitalization, Other)
  Sender: FDA-Public Use
  Company Number: NVSC2020DE185604

PATIENT
  Sex: Female

DRUGS (21)
  1. METHOTREXATE. [Suspect]
     Active Substance: METHOTREXATE
     Dosage: 17.5 IU (17.5 MILLIGRAM)
     Route: 065
  2. METHOTREXATE. [Suspect]
     Active Substance: METHOTREXATE
     Dosage: 20 MG, QW
     Route: 065
     Dates: start: 201904
  3. METHOTREXATE. [Suspect]
     Active Substance: METHOTREXATE
     Dosage: 15 MG
     Route: 065
  4. BECLOMETASONE;FORMOTEROL [Concomitant]
     Active Substance: BECLOMETHASONE\FORMOTEROL
     Indication: PRODUCT USED FOR UNKNOWN INDICATION
     Dosage: UNK
     Route: 065
  5. FOLIC ACID. [Concomitant]
     Active Substance: FOLIC ACID
     Indication: PRODUCT USED FOR UNKNOWN INDICATION
     Dosage: UNK
     Route: 065
  6. BISOPROLOL [Concomitant]
     Active Substance: BISOPROLOL
     Indication: PRODUCT USED FOR UNKNOWN INDICATION
     Dosage: UNK
     Route: 065
  7. KINERET [Concomitant]
     Active Substance: ANAKINRA
     Indication: PRODUCT USED FOR UNKNOWN INDICATION
     Dosage: 100 MG
     Route: 065
     Dates: start: 202006, end: 202006
  8. METHOTREXATE. [Suspect]
     Active Substance: METHOTREXATE
     Dosage: 10 MG
     Route: 065
  9. CERTOLIZUMAB PEGOL [Suspect]
     Active Substance: CERTOLIZUMAB PEGOL
     Dosage: 200 MG, Q2W (EV 2 WEEKS(QOW))
     Route: 058
     Dates: start: 201907, end: 20200113
  10. COLECALCIFEROL [Concomitant]
     Active Substance: CHOLECALCIFEROL
     Indication: PRODUCT USED FOR UNKNOWN INDICATION
     Dosage: UNK
     Route: 065
  11. PREDNISOLONE. [Concomitant]
     Active Substance: PREDNISOLONE
     Indication: PRODUCT USED FOR UNKNOWN INDICATION
     Dosage: UNK
     Route: 065
  12. APIXABAN [Concomitant]
     Active Substance: APIXABAN
     Indication: PRODUCT USED FOR UNKNOWN INDICATION
     Dosage: UNK
     Route: 065
  13. CERTOLIZUMAB PEGOL [Suspect]
     Active Substance: CERTOLIZUMAB PEGOL
     Indication: RHEUMATOID ARTHRITIS
     Dosage: 200 MG, Q2W (200 MILLIGRAM)
     Route: 058
     Dates: start: 201705, end: 20180213
  14. METHOTREXATE. [Suspect]
     Active Substance: METHOTREXATE
     Dosage: 20 MG, QW
     Route: 065
     Dates: start: 201907
  15. TRAMADOL. [Concomitant]
     Active Substance: TRAMADOL
     Indication: PRODUCT USED FOR UNKNOWN INDICATION
     Dosage: UNK
     Route: 065
  16. MACROGOL [Concomitant]
     Active Substance: POLYETHYLENE GLYCOLS
     Indication: PRODUCT USED FOR UNKNOWN INDICATION
     Dosage: UNK
     Route: 065
  17. METHOTREXATE. [Suspect]
     Active Substance: METHOTREXATE
     Indication: PRODUCT USED FOR UNKNOWN INDICATION
     Dosage: 17.5 MG, QW
     Route: 065
  18. COLCHICUM [Concomitant]
     Active Substance: COLCHICINE
     Indication: PRODUCT USED FOR UNKNOWN INDICATION
     Dosage: UNK
     Route: 065
  19. METHOTREXATE. [Suspect]
     Active Substance: METHOTREXATE
     Dosage: 20 MG
     Route: 065
  20. CERTOLIZUMAB PEGOL [Suspect]
     Active Substance: CERTOLIZUMAB PEGOL
     Dosage: 200 MG, Q2W (200 MILIGRAM)
     Route: 058
     Dates: start: 201803, end: 201904
  21. PANTOPRAZOLE [Concomitant]
     Active Substance: PANTOPRAZOLE
     Indication: PRODUCT USED FOR UNKNOWN INDICATION
     Dosage: UNK
     Route: 065

REACTIONS (14)
  - Arthralgia [Recovered/Resolved]
  - Hypercholesterolaemia [Unknown]
  - Carpal tunnel syndrome [Unknown]
  - Osteoarthritis [Unknown]
  - Hypermobility syndrome [Unknown]
  - Muscle rupture [Not Recovered/Not Resolved]
  - Pulmonary embolism [Recovered/Resolved]
  - Oral herpes [Recovered/Resolved]
  - Faecaloma [Recovered/Resolved]
  - Chondrocalcinosis [Not Recovered/Not Resolved]
  - Osteoarthritis [Unknown]
  - Escherichia urinary tract infection [Unknown]
  - Body fat disorder [Recovered/Resolved]
  - Ligament rupture [Not Recovered/Not Resolved]

NARRATIVE: CASE EVENT DATE: 20180206
